FAERS Safety Report 8163743-2 (Version None)
Quarter: 2012Q1

REPORT INFORMATION
  Report Type: 
  Country: None (occurrence: None)
  Receive Date: 20120224
  Receipt Date: 20120218
  Transmission Date: 20120608
  Serious: Yes (Other)
  Sender: FDA-Public Use
  Company Number: PT-BAYER-2012-012850

PATIENT
  Age: 71 Year
  Sex: Female

DRUGS (14)
  1. BETASERON [Suspect]
     Indication: SECONDARY PROGRESSIVE MULTIPLE SCLEROSIS
     Dosage: 250 MCG/ML, QOD
     Route: 058
     Dates: start: 19990228, end: 20120203
  2. BETASERON [Suspect]
     Dosage: 250 ?G, QOD
     Route: 058
     Dates: start: 20120214
  3. LEXOTAN [Concomitant]
  4. TRENTAL [Concomitant]
  5. FURADANTIN [Concomitant]
  6. DAFLON [DIOSMIN,HESPERIDIN] [Concomitant]
  7. PRAVASTATIN [Concomitant]
  8. IRON [Concomitant]
  9. IRBESARTAN [Concomitant]
  10. ZOLPIDEM [Concomitant]
  11. TERAZOSIN HCL [Suspect]
     Dosage: UNK
     Dates: start: 20111001, end: 20120203
  12. DAFLON [DIOSMIN] [Concomitant]
  13. AMITRIPTYLINE HCL [Concomitant]
  14. DITROPAN [Concomitant]

REACTIONS (5)
  - PANCYTOPENIA [None]
  - TREMOR [None]
  - THROMBOCYTOPENIA [None]
  - HYPOTHERMIA [None]
  - FATIGUE [None]
